FAERS Safety Report 20548356 (Version 1)
Quarter: 2022Q1

REPORT INFORMATION
  Report Type: Spontaneous
  Country: US (occurrence: US)
  Receive Date: 20220303
  Receipt Date: 20220303
  Transmission Date: 20220423
  Serious: No
  Sender: FDA-Public Use
  Company Number: US-ALLERGAN-2107670US

PATIENT
  Age: 83 Year
  Sex: Female

DRUGS (1)
  1. RESTASIS [Suspect]
     Active Substance: CYCLOSPORINE
     Indication: Dry eye
     Dosage: 1 GTT OU BID
     Route: 047

REACTIONS (7)
  - Dry eye [Not Recovered/Not Resolved]
  - Expired product administered [Unknown]
  - Prescription drug used without a prescription [Unknown]
  - Poor quality product administered [Unknown]
  - Eye irritation [Not Recovered/Not Resolved]
  - Product temperature excursion issue [Unknown]
  - Eye pain [Recovered/Resolved]

NARRATIVE: CASE EVENT DATE: 20201201
